FAERS Safety Report 16172341 (Version 1)
Quarter: 2019Q2

REPORT INFORMATION
  Report Type: Spontaneous
  Country: US (occurrence: US)
  Receive Date: 20190409
  Receipt Date: 20190409
  Transmission Date: 20190711
  Serious: No
  Sender: FDA-Public Use
  Company Number: US-BEH-2019101275

PATIENT
  Sex: Female

DRUGS (2)
  1. PRIVIGEN [Suspect]
     Active Substance: HUMAN IMMUNOGLOBULIN G
     Indication: IMMUNODEFICIENCY
     Dosage: UNK
     Route: 065
     Dates: start: 2019
  2. PRIVIGEN [Suspect]
     Active Substance: HUMAN IMMUNOGLOBULIN G
     Indication: WALDENSTROM^S MACROGLOBULINAEMIA

REACTIONS (8)
  - Photosensitivity reaction [Unknown]
  - Burning sensation [Unknown]
  - Myalgia [Unknown]
  - Neuralgia [Unknown]
  - Headache [Unknown]
  - Visual impairment [Unknown]
  - Pain [Unknown]
  - Musculoskeletal stiffness [Unknown]
